FAERS Safety Report 24696555 (Version 1)
Quarter: 2024Q4

REPORT INFORMATION
  Report Type: Spontaneous
  Country: ES (occurrence: ES)
  Receive Date: 20241204
  Receipt Date: 20241204
  Transmission Date: 20250115
  Serious: Yes (Other)
  Sender: NOVARTIS
  Company Number: ES-002147023-NVSC2024ES230232

PATIENT
  Age: 5 Year
  Sex: Female

DRUGS (2)
  1. TRAMETINIB [Suspect]
     Active Substance: TRAMETINIB
     Indication: Optic glioma
     Dosage: UNK
     Route: 065
  2. TRAMETINIB [Suspect]
     Active Substance: TRAMETINIB
     Indication: Neurofibromatosis

REACTIONS (4)
  - Xerosis [Recovered/Resolved]
  - Folliculitis [Recovered/Resolved]
  - Blepharitis [Recovered/Resolved]
  - Dermatitis exfoliative generalised [Recovering/Resolving]
